FAERS Safety Report 7400750-9 (Version None)
Quarter: 2011Q2

REPORT INFORMATION
  Report Type: 
  Country: None (occurrence: None)
  Receive Date: 20110407
  Receipt Date: 20110331
  Transmission Date: 20111010
  Serious: Yes (Hospitalization)
  Sender: FDA-Public Use
  Company Number: A0920880A

PATIENT
  Age: 48 Year
  Sex: Female

DRUGS (2)
  1. IRON SUPPLEMENTS [Concomitant]
  2. ADVAIR HFA [Suspect]
     Indication: CHRONIC OBSTRUCTIVE PULMONARY DISEASE
     Dosage: 1PUFF TWICE PER DAY
     Route: 055
     Dates: start: 20070101, end: 20110317

REACTIONS (6)
  - CANDIDIASIS [None]
  - SYSTEMIC MYCOSIS [None]
  - DYSPHAGIA [None]
  - APHAGIA [None]
  - ORAL PAIN [None]
  - MOUTH HAEMORRHAGE [None]
